FAERS Safety Report 13936347 (Version 3)
Quarter: 2017Q3

REPORT INFORMATION
  Report Type: Spontaneous
  Country: JP (occurrence: JP)
  Receive Date: 20170905
  Receipt Date: 20170925
  Transmission Date: 20171127
  Serious: Yes (Hospitalization, Other)
  Sender: FDA-Public Use
  Company Number: JP-GLAXOSMITHKLINE-JP2017JPN124389

PATIENT
  Age: 20 Year
  Sex: Male
  Weight: 58 kg

DRUGS (6)
  1. DEPROMEL [Suspect]
     Active Substance: FLUVOXAMINE
     Dosage: 50 MG, BID
     Route: 048
     Dates: end: 20170612
  2. RISPERDAL [Suspect]
     Active Substance: RISPERIDONE
     Dosage: 0.5 MG, QD
     Route: 048
     Dates: end: 20170612
  3. LAMICTAL [Suspect]
     Active Substance: LAMOTRIGINE
     Dosage: 50 MG, QD
     Route: 048
     Dates: start: 20170530, end: 20170610
  4. LAMICTAL [Suspect]
     Active Substance: LAMOTRIGINE
     Indication: EPILEPSY
     Dosage: 25 MG, QD
     Route: 048
     Dates: start: 20170516, end: 20170529
  5. VALPROATE SODIUM. [Concomitant]
     Active Substance: VALPROATE SODIUM
     Dosage: UNK
  6. LUNESTA [Concomitant]
     Active Substance: ESZOPICLONE
     Dosage: 2 MG, QD

REACTIONS (11)
  - Pyrexia [Recovered/Resolved]
  - Drug eruption [Recovering/Resolving]
  - Rash [Recovering/Resolving]
  - Skin erosion [Unknown]
  - Blister [Recovered/Resolved]
  - Lip swelling [Recovered/Resolved]
  - Hepatic function abnormal [Recovered/Resolved]
  - Erythema multiforme [Recovering/Resolving]
  - Lymphadenopathy [Unknown]
  - Drug reaction with eosinophilia and systemic symptoms [Recovering/Resolving]
  - Generalised erythema [Recovering/Resolving]

NARRATIVE: CASE EVENT DATE: 20170610
